FAERS Safety Report 7568274-6 (Version None)
Quarter: 2011Q2

REPORT INFORMATION
  Report Type: 
  Country: None (occurrence: None)
  Receive Date: 20110623
  Receipt Date: 20110408
  Transmission Date: 20111010
  Serious: Yes (Other)
  Sender: FDA-Public Use
  Company Number: DE-ROCHE-770361

PATIENT
  Age: 68 Year
  Sex: Female
  Weight: 88 kg

DRUGS (1)
  1. IBANDRONATE SODIUM [Suspect]
     Indication: OSTEOPOROSIS
     Route: 042
     Dates: start: 20100818, end: 20101118

REACTIONS (2)
  - HYPERSENSITIVITY [None]
  - PRURITUS [None]
